FAERS Safety Report 24783819 (Version 1)
Quarter: 2024Q4

REPORT INFORMATION
  Report Type: Spontaneous
  Country: EU (occurrence: EU)
  Receive Date: 20241227
  Receipt Date: 20241227
  Transmission Date: 20250114
  Serious: Yes (Hospitalization)
  Sender: ETHYPHARM
  Company Number: None

PATIENT

DRUGS (5)
  1. BUPRENORPHINE HYDROCHLORIDE [Suspect]
     Active Substance: BUPRENORPHINE HYDROCHLORIDE
     Dosage: BUPR?NORPHINE ^DE RUE^: ENTRE 4 ET 6MG/J LES JOURS SANS H?RO?NE
  2. HEROIN [Suspect]
     Active Substance: DIAMORPHINE
     Dosage: ACTUELLEMENT 1G/J QUAND IL NE TROUVE PAS DE BUPR?NORPHINE
     Route: 045
     Dates: start: 2017
  3. MIDOMAFETAMINE [Suspect]
     Active Substance: MIDOMAFETAMINE
     Route: 045
     Dates: start: 2013
  4. COCAINE [Suspect]
     Active Substance: COCAINE
     Route: 045
     Dates: start: 2013, end: 2015
  5. COCAINE [Suspect]
     Active Substance: COCAINE
     Dosage: 2 ? 3 GRAMMES PAR JOUR
     Route: 055
     Dates: start: 2015

REACTIONS (5)
  - Drug abuse [Not Recovered/Not Resolved]
  - Gun shot wound [Recovering/Resolving]
  - Radius fracture [Recovering/Resolving]
  - Tendon injury [Recovering/Resolving]
  - Peripheral nerve injury [Recovering/Resolving]

NARRATIVE: CASE EVENT DATE: 20090101
